FAERS Safety Report 6174056-2 (Version None)
Quarter: 2009Q2

REPORT INFORMATION
  Report Type: 
  Country: None (occurrence: None)
  Receive Date: 20090430
  Receipt Date: 20080305
  Transmission Date: 20091009
  Serious: No
  Sender: FDA-Public Use
  Company Number: US-ASTRAZENECA-2008UW04610

PATIENT
  Age: 78 Year
  Sex: Female
  Weight: 63.5 kg

DRUGS (5)
  1. NEXIUM [Suspect]
     Indication: DYSPEPSIA
     Route: 048
     Dates: start: 20080301
  2. NEXIUM [Suspect]
     Indication: NAUSEA
     Route: 048
     Dates: start: 20080301
  3. XANAX [Concomitant]
  4. THYROID MEDICATION [Concomitant]
  5. NAPROSYN [Concomitant]

REACTIONS (3)
  - ABDOMINAL DISCOMFORT [None]
  - FATIGUE [None]
  - NAUSEA [None]
